FAERS Safety Report 4293534-4 (Version None)
Quarter: 2004Q1

REPORT INFORMATION
  Report Type: 
  Country: None (occurrence: None)
  Receive Date: 20040210
  Receipt Date: 20040128
  Transmission Date: 20041129
  Serious: No
  Sender: FDA-Public Use
  Company Number: 03P-056-0246011-00

PATIENT
  Age: 29 Year
  Sex: Female

DRUGS (6)
  1. DEPAKENE [Suspect]
     Indication: EPILEPSY
     Dosage: SEE IMAGE
     Route: 048
     Dates: start: 19920101, end: 19991015
  2. DEPAKENE [Suspect]
     Indication: EPILEPSY
     Dosage: SEE IMAGE
     Route: 048
     Dates: start: 19991015
  3. TOPIRMATE [Suspect]
     Indication: EPILEPSY
     Dosage: SEE IMAGE
     Route: 048
     Dates: start: 19990825, end: 19990925
  4. TOPIRMATE [Suspect]
     Indication: EPILEPSY
     Dosage: SEE IMAGE
     Route: 048
     Dates: start: 19990926
  5. CLONAZEPAM [Concomitant]
  6. LAMOTRIGINE [Concomitant]

REACTIONS (6)
  - ANOREXIA [None]
  - COGNITIVE DISORDER [None]
  - DRUG INTERACTION [None]
  - ENCEPHALOPATHY [None]
  - HYPERAMMONAEMIA [None]
  - PROSTRATION [None]
